FAERS Safety Report 18219752 (Version 1)
Quarter: 2020Q3

REPORT INFORMATION
  Report Type: Report from Study
  Country: US (occurrence: US)
  Receive Date: 20200901
  Receipt Date: 20200901
  Transmission Date: 20201103
  Serious: No
  Sender: FDA-Public Use
  Company Number: US-VIFOR (INTERNATIONAL) INC.-VIT-2020-08478

PATIENT
  Age: 68 Year
  Sex: Male
  Weight: 104.42 kg

DRUGS (6)
  1. PANTOPRAZOLE [Concomitant]
     Active Substance: PANTOPRAZOLE
  2. ATORVASTATIN [Concomitant]
     Active Substance: ATORVASTATIN
  3. ENVARSUS XR [Concomitant]
     Active Substance: TACROLIMUS
  4. VELTASSA [Suspect]
     Active Substance: PATIROMER
     Indication: HYPERKALAEMIA
     Route: 048
     Dates: start: 2020
  5. VALGANCICLOVIR. [Concomitant]
     Active Substance: VALGANCICLOVIR
  6. ZORTRESS [Concomitant]
     Active Substance: EVEROLIMUS

REACTIONS (3)
  - Unevaluable event [Unknown]
  - Product distribution issue [Unknown]
  - Product dose omission issue [Unknown]

NARRATIVE: CASE EVENT DATE: 2020
